FAERS Safety Report 9636601 (Version 1)
Quarter: 2013Q4

REPORT INFORMATION
  Report Type: Spontaneous
  Country: US (occurrence: US)
  Receive Date: 20131021
  Receipt Date: 20131021
  Transmission Date: 20140711
  Serious: No
  Sender: FDA-Public Use
  Company Number: US-PFIZER INC-2011187280

PATIENT
  Sex: Female

DRUGS (2)
  1. PREMPRO [Suspect]
     Dosage: 0.625/2.5, DAILY
     Dates: start: 2006, end: 201101
  2. VITAMINS [Concomitant]
     Dosage: UNK

REACTIONS (10)
  - Dyspnoea [Unknown]
  - Fluid retention [Unknown]
  - Weight increased [Unknown]
  - Lethargy [Unknown]
  - Fatigue [Unknown]
  - Asthenia [Unknown]
  - Anxiety [Unknown]
  - Insomnia [Unknown]
  - Loss of libido [Unknown]
  - Hot flush [Unknown]
